FAERS Safety Report 9228397 (Version 2)
Quarter: 2013Q2

REPORT INFORMATION
  Report Type: Spontaneous
  Country: US (occurrence: US)
  Receive Date: 20130412
  Receipt Date: 20130422
  Transmission Date: 20140414
  Serious: Yes (Death, Hospitalization)
  Sender: FDA-Public Use
  Company Number: US-GLAXOSMITHKLINE-A1018712A

PATIENT
  Age: 63 Year
  Sex: Male

DRUGS (2)
  1. ADVAIR [Suspect]
     Indication: CHRONIC OBSTRUCTIVE PULMONARY DISEASE
     Route: 055
  2. HEART MEDICATION [Concomitant]

REACTIONS (9)
  - Pneumothorax [Not Recovered/Not Resolved]
  - Coma [Not Recovered/Not Resolved]
  - Apparent death [Not Recovered/Not Resolved]
  - Brain death [Not Recovered/Not Resolved]
  - Dyspnoea [Not Recovered/Not Resolved]
  - Insomnia [Not Recovered/Not Resolved]
  - Hypotension [Not Recovered/Not Resolved]
  - Drug administration error [Not Recovered/Not Resolved]
  - Death [Fatal]
